FAERS Safety Report 5294245-9 (Version None)
Quarter: 2007Q2

REPORT INFORMATION
  Report Type: 
  Country: None (occurrence: None)
  Receive Date: 20070409
  Receipt Date: 20070409
  Transmission Date: 20071010
  Serious: Yes (Life-Threatening, Hospitalization, Disabling)
  Sender: FDA-Public Use
  Company Number: None

PATIENT
  Age: 65 Year
  Sex: Female
  Weight: 100.6985 kg

DRUGS (1)
  1. BUMETANIDE [Suspect]
     Indication: FLUID RETENTION
     Dosage: 60 TABS 1 TWO TIMES A DAY PO
     Route: 048
     Dates: start: 20070225, end: 20070312

REACTIONS (5)
  - EPISTAXIS [None]
  - PHARMACEUTICAL PRODUCT COMPLAINT [None]
  - PNEUMONIA [None]
  - PULMONARY OEDEMA [None]
  - SINUS HEADACHE [None]
